FAERS Safety Report 6648325-3 (Version None)
Quarter: 2010Q1

REPORT INFORMATION
  Report Type: 
  Country: None (occurrence: None)
  Receive Date: 20100309
  Receipt Date: 20100123
  Transmission Date: 20100710
  Serious: No
  Sender: FDA-Public Use
  Company Number: 2010SP005225

PATIENT
  Age: 28 Year
  Sex: Female
  Weight: 74.3899 kg

DRUGS (3)
  1. SAPHRIS [Suspect]
     Indication: BIPOLAR DISORDER
     Dosage: 5 MG ; BID ; SL
     Route: 060
     Dates: start: 20100120
  2. LITHIUM CARBONATE [Concomitant]
  3. PAROXETINE HCL [Concomitant]

REACTIONS (1)
  - TREMOR [None]
